FAERS Safety Report 15406329 (Version 1)
Quarter: 2018Q3

REPORT INFORMATION
  Report Type: Spontaneous
  Country: US (occurrence: US)
  Receive Date: 20180920
  Receipt Date: 20180920
  Transmission Date: 20181010
  Serious: Yes (Death, Life-Threatening, Hospitalization, Other)
  Sender: FDA-Public Use
  Company Number: US-AUROBINDO-AUR-APL-2018-043226

PATIENT
  Age: 57 Year
  Sex: Female

DRUGS (1)
  1. OXYCODONE [Suspect]
     Active Substance: OXYCODONE
     Indication: PRODUCT USED FOR UNKNOWN INDICATION
     Dosage: CRUSHED OXYCODONE PARTICLES, TWO SYRINGES ()
     Route: 042

REACTIONS (10)
  - Pulmonary hypertension [Unknown]
  - Pulmonary granuloma [Fatal]
  - Intentional product misuse [Unknown]
  - Right ventricular failure [Unknown]
  - Pulmonary infarction [Unknown]
  - Ventricular fibrillation [Fatal]
  - Hypotension [Unknown]
  - Incorrect route of drug administration [Unknown]
  - Atrial flutter [Unknown]
  - Pulmonary embolism [Unknown]
